FAERS Safety Report 18293072 (Version 1)
Quarter: 2020Q3

REPORT INFORMATION
  Report Type: Spontaneous
  Country: US (occurrence: US)
  Receive Date: 20200921
  Receipt Date: 20200921
  Transmission Date: 20201103
  Serious: No
  Sender: FDA-Public Use
  Company Number: US-CATALYST PHARMACEUTICALS, INC-2020CAT00223

PATIENT
  Sex: Female
  Weight: 76.19 kg

DRUGS (12)
  1. FIRDAPSE [Suspect]
     Active Substance: AMIFAMPRIDINE PHOSPHATE
     Indication: MYASTHENIC SYNDROME
     Dosage: 10 MG, 4X/DAY
     Route: 048
     Dates: start: 2020, end: 2020
  2. PYRIDOSTIGMINE [Concomitant]
     Active Substance: PYRIDOSTIGMINE
     Dosage: 60 MG, 3X/DAY
  3. DULOXETINE. [Concomitant]
     Active Substance: DULOXETINE
  4. NEXIUM [Concomitant]
     Active Substance: ESOMEPRAZOLE MAGNESIUM
  5. FIRDAPSE [Suspect]
     Active Substance: AMIFAMPRIDINE PHOSPHATE
     Dosage: 10 MG, 4X/DAY WITH SPREADING ONE OF THE PILLS OUT TO THE EVENING
     Route: 048
     Dates: start: 2020
  6. ATORVASTATIN [Concomitant]
     Active Substance: ATORVASTATIN
  7. FIRDAPSE [Suspect]
     Active Substance: AMIFAMPRIDINE PHOSPHATE
     Dosage: 5 MG, 4X/DAY
     Route: 048
     Dates: start: 2020, end: 2020
  8. TOPIRAMATE. [Concomitant]
     Active Substance: TOPIRAMATE
  9. METFORMIN EXTENDED RELEASE [Concomitant]
     Active Substance: METFORMIN HYDROCHLORIDE
  10. LEVOTHYROXINE. [Concomitant]
     Active Substance: LEVOTHYROXINE
  11. POTASSIUM [Concomitant]
     Active Substance: POTASSIUM
     Dosage: PRESCRIPTION DOSE
  12. MAGNESIUM [Concomitant]
     Active Substance: MAGNESIUM
     Dosage: PRESCRIPTION DOSE

REACTIONS (5)
  - Feeling abnormal [Recovered/Resolved]
  - Abdominal pain upper [Recovering/Resolving]
  - Paraesthesia [Recovering/Resolving]
  - Flatulence [Recovering/Resolving]
  - Paraesthesia oral [Recovering/Resolving]

NARRATIVE: CASE EVENT DATE: 2020
